FAERS Safety Report 10703227 (Version 2)
Quarter: 2015Q1

REPORT INFORMATION
  Report Type: Report from Study
  Country: TW (occurrence: TW)
  Receive Date: 20150112
  Receipt Date: 20150126
  Transmission Date: 20150721
  Serious: Yes (Death, Hospitalization, Other)
  Sender: FDA-Public Use
  Company Number: TW-BRISTOL-MYERS SQUIBB COMPANY-BMS-2014-006923

PATIENT
  Age: 83 Year
  Sex: Female

DRUGS (3)
  1. METHOTREXATE [Concomitant]
     Active Substance: METHOTREXATE
  2. PREDNISOLONE. [Concomitant]
     Active Substance: PREDNISOLONE
  3. ABATACEPT [Suspect]
     Active Substance: ABATACEPT
     Indication: RHEUMATOID ARTHRITIS
     Dosage: 500 MG, QMO
     Route: 041
     Dates: start: 20131007

REACTIONS (2)
  - Respiratory failure [Fatal]
  - Hypophagia [Unknown]

NARRATIVE: CASE EVENT DATE: 20141221
